FAERS Safety Report 16899021 (Version 2)
Quarter: 2019Q4

REPORT INFORMATION
  Report Type: Spontaneous
  Country: US (occurrence: US)
  Receive Date: 20191009
  Receipt Date: 20191204
  Transmission Date: 20200122
  Serious: No
  Sender: FDA-Public Use
  Company Number: US-PFIZER INC-2019432988

PATIENT
  Age: 38 Year
  Sex: Female

DRUGS (4)
  1. IBRANCE [Suspect]
     Active Substance: PALBOCICLIB
     Dosage: 125 MG, CYCLIC (D 1-21Q (EVERY) 28 D)
     Route: 048
     Dates: start: 20191005
  2. TRELSTAR [Concomitant]
     Active Substance: TRIPTORELIN PAMOATE
     Dosage: UNK
  3. IBRANCE [Suspect]
     Active Substance: PALBOCICLIB
     Indication: BREAST CANCER
     Dosage: 125 MG, CYCLIC  (D 1-21Q (EVERY) 28 D)
     Route: 048
     Dates: start: 20190917
  4. LETROZOLE. [Concomitant]
     Active Substance: LETROZOLE
     Dosage: UNK

REACTIONS (1)
  - Fatigue [Not Recovered/Not Resolved]
